FAERS Safety Report 24243477 (Version 1)
Quarter: 2024Q3

REPORT INFORMATION
  Report Type: Spontaneous
  Country: TW (occurrence: TW)
  Receive Date: 20240823
  Receipt Date: 20240823
  Transmission Date: 20241017
  Serious: Yes (Other)
  Sender: The J.Molner Company
  Company Number: TW-THE J. MOLNER COMPANY-202408000021

PATIENT

DRUGS (1)
  1. HYDROCORTISONE BUTYRATE [Suspect]
     Active Substance: HYDROCORTISONE BUTYRATE
     Indication: Adrenal insufficiency
     Dosage: 100 MILLIGRAM, QD
     Route: 042

REACTIONS (2)
  - Diabetes insipidus [Unknown]
  - Postpartum hypopituitarism [Unknown]
